FAERS Safety Report 5271774-5 (Version None)
Quarter: 2007Q1

REPORT INFORMATION
  Report Type: 
  Country: None (occurrence: None)
  Receive Date: 20070321
  Receipt Date: 20070310
  Transmission Date: 20070707
  Serious: Yes (Other)
  Sender: FDA-Public Use
  Company Number: US-PFIZER INC-2007018686

PATIENT
  Sex: Male
  Weight: 99.8 kg

DRUGS (6)
  1. CHANTIX [Suspect]
     Indication: EX-SMOKER
  2. AVALIDE [Concomitant]
     Indication: HYPERTENSION
  3. ATENOLOL [Concomitant]
     Indication: HYPERTENSION
  4. COENZYME Q10 [Concomitant]
  5. FLAXSEED OIL [Concomitant]
  6. METFORMIN [Concomitant]

REACTIONS (1)
  - BLOOD GLUCOSE INCREASED [None]
